FAERS Safety Report 7722481-8 (Version None)
Quarter: 2011Q3

REPORT INFORMATION
  Report Type: 
  Country: None (occurrence: None)
  Receive Date: 20110831
  Receipt Date: 20110826
  Transmission Date: 20111222
  Serious: Yes (Other)
  Sender: FDA-Public Use
  Company Number: US-PFIZER INC-2011164402

PATIENT
  Sex: Female

DRUGS (1)
  1. PHENYTOIN SODIUM [Suspect]
     Dosage: 500MG DAILY

REACTIONS (3)
  - FEELING ABNORMAL [None]
  - AURA [None]
  - GRAND MAL CONVULSION [None]
